FAERS Safety Report 6960520-2 (Version None)
Quarter: 2010Q3

REPORT INFORMATION
  Report Type: 
  Country: None (occurrence: None)
  Receive Date: 20100901
  Receipt Date: 20100819
  Transmission Date: 20110219
  Serious: Yes (Other)
  Sender: FDA-Public Use
  Company Number: US-JNJFOC-20100807057

PATIENT
  Age: 86 Year
  Sex: Female
  Weight: 41.73 kg

DRUGS (1)
  1. PANCREAZE [Suspect]
     Indication: PANCREATITIS
     Route: 048

REACTIONS (2)
  - DIARRHOEA [None]
  - WEIGHT DECREASED [None]
